FAERS Safety Report 11914196 (Version 1)
Quarter: 2016Q1

REPORT INFORMATION
  Report Type: Spontaneous
  Country: US (occurrence: US)
  Receive Date: 20160113
  Receipt Date: 20160113
  Transmission Date: 20160526
  Serious: No
  Sender: FDA-Public Use
  Company Number: GXBR2015US002255

PATIENT
  Age: 29 Year
  Sex: Female
  Weight: 58.96 kg

DRUGS (4)
  1. CEFTRIAXONE. [Suspect]
     Active Substance: CEFTRIAXONE
     Indication: BACTERIAL INFECTION
     Dosage: 1 G, ONCE/SINGLE
     Route: 030
     Dates: start: 20150926, end: 20150926
  2. ZOFRAN [Suspect]
     Active Substance: ONDANSETRON HYDROCHLORIDE
     Indication: INFLUENZA LIKE ILLNESS
     Dosage: UNK DF, UNK
     Route: 048
     Dates: start: 20150926
  3. AZITHROMYCIN ANHYDROUS. [Suspect]
     Active Substance: AZITHROMYCIN ANHYDROUS
     Indication: INFLUENZA LIKE ILLNESS
     Dosage: UNK DF, UNK
     Route: 048
     Dates: start: 20150926, end: 20150926
  4. DUEXIS [Concomitant]
     Active Substance: FAMOTIDINE\IBUPROFEN
     Indication: INTERVERTEBRAL DISC PROTRUSION
     Dosage: 800 MG, PRN
     Route: 048

REACTIONS (7)
  - Diarrhoea [Unknown]
  - Urinary tract disorder [Recovered/Resolved]
  - Myalgia [Recovering/Resolving]
  - Injection site pain [Unknown]
  - Chills [Recovered/Resolved]
  - Arthralgia [Recovering/Resolving]
  - Pyrexia [Recovered/Resolved]

NARRATIVE: CASE EVENT DATE: 20150926
